FAERS Safety Report 9662595 (Version 2)
Quarter: 2013Q4

REPORT INFORMATION
  Report Type: Spontaneous
  Country: US (occurrence: US)
  Receive Date: 20131031
  Receipt Date: 20131031
  Transmission Date: 20140711
  Serious: No
  Sender: FDA-Public Use
  Company Number: US-PURDUE-USA-2010-0058458

PATIENT
  Sex: Female

DRUGS (1)
  1. OXYCONTIN (NDA 22-272) [Suspect]
     Indication: PRODUCT USED FOR UNKNOWN INDICATION
     Dosage: 240 MG, BID
     Dates: start: 2010

REACTIONS (4)
  - Constipation [Unknown]
  - Abdominal pain upper [Unknown]
  - Inadequate analgesia [Unknown]
  - Therapeutic response delayed [Unknown]
